FAERS Safety Report 13191302 (Version 1)
Quarter: 2017Q1

REPORT INFORMATION
  Report Type: Report from Study
  Country: US (occurrence: US)
  Receive Date: 20170207
  Receipt Date: 20170207
  Transmission Date: 20170428
  Serious: Yes (Life-Threatening)
  Sender: FDA-Public Use
  Company Number: US-CONCORDIA PHARMACEUTICALS INC.-GSH201702-000813

PATIENT
  Sex: Female

DRUGS (2)
  1. DRAMAMINE [Suspect]
     Active Substance: DIMENHYDRINATE
     Indication: ABDOMINAL PAIN
     Dosage: 2.5 CC.DRAMAMINE Q 4 HRS.
  2. DONNATAL [Suspect]
     Active Substance: ATROPINE SULFATE\HYOSCYAMINE SULFATE\PHENOBARBITAL\SCOPOLAMINE HYDROBROMIDE
     Indication: ABDOMINAL PAIN
     Dosage: 2.5 CC.DONNATAL Q 4 HRS

REACTIONS (1)
  - Apparent life threatening event [Unknown]
